FAERS Safety Report 7810248-1 (Version None)
Quarter: 2011Q4

REPORT INFORMATION
  Report Type: 
  Country: None (occurrence: None)
  Receive Date: 20111012
  Receipt Date: 20111003
  Transmission Date: 20120403
  Serious: Yes (Hospitalization)
  Sender: FDA-Public Use
  Company Number: US-ACTELION-A-US2011-52679

PATIENT

DRUGS (3)
  1. TESSALON [Concomitant]
  2. TRACLEER [Suspect]
     Indication: PULMONARY ARTERIAL HYPERTENSION
     Dosage: UNK
     Route: 048
     Dates: start: 20101008
  3. ADCIRCA [Concomitant]

REACTIONS (6)
  - FALL [None]
  - COUGH [None]
  - JOINT INJURY [None]
  - SYNCOPE [None]
  - HEAD INJURY [None]
  - LOSS OF CONSCIOUSNESS [None]
